FAERS Safety Report 26183865 (Version 1)
Quarter: 2025Q4

REPORT INFORMATION
  Report Type: Spontaneous
  Country: MY (occurrence: MY)
  Receive Date: 20251221
  Receipt Date: 20251221
  Transmission Date: 20260118
  Serious: Yes (Death)
  Sender: ALEXION PHARMACEUTICALS
  Company Number: MY-AstraZeneca-CH-01017999A

PATIENT
  Age: 70 Year
  Sex: Female

DRUGS (8)
  1. DAPAGLIFLOZIN [Suspect]
     Active Substance: DAPAGLIFLOZIN
     Dosage: 10 DOSAGE FORM, QD
     Route: 061
     Dates: start: 202505, end: 20251104
  2. ASPIRIN [Concomitant]
     Active Substance: ASPIRIN
     Route: 065
  3. ATORVASTATIN [Concomitant]
     Active Substance: ATORVASTATIN
     Dosage: 40 MILLIGRAM
     Route: 065
  4. PANTOPRAZOLE [Concomitant]
     Active Substance: PANTOPRAZOLE
     Dosage: 40 MILLIGRAM
     Route: 065
  5. BISOPROLOL [Concomitant]
     Active Substance: BISOPROLOL
     Dosage: 1.25 MILLIGRAM
     Route: 065
  6. ENTRESTO [Concomitant]
     Active Substance: SACUBITRIL\VALSARTAN
     Dosage: 50 MILLIGRAM, BID
     Route: 065
  7. METFORMIN [Concomitant]
     Active Substance: METFORMIN HYDROCHLORIDE
     Dosage: 1 GRAM, BID
     Route: 065
  8. FUROSEMIDE [Concomitant]
     Active Substance: FUROSEMIDE
     Dosage: 40 MILLIGRAM, QD
     Route: 065

REACTIONS (2)
  - Septic shock [Fatal]
  - Urosepsis [Fatal]

NARRATIVE: CASE EVENT DATE: 20251104
